FAERS Safety Report 18168646 (Version 2)
Quarter: 2020Q3

REPORT INFORMATION
  Report Type: Spontaneous
  Country: US (occurrence: US)
  Receive Date: 20200819
  Receipt Date: 20200826
  Transmission Date: 20201103
  Serious: No
  Sender: FDA-Public Use
  Company Number: US-SA-2020SA216612

PATIENT

DRUGS (2)
  1. DUPIXENT [Suspect]
     Active Substance: DUPILUMAB
     Indication: NASAL POLYPS
     Dosage: 300 MG, QOW
     Route: 058
     Dates: start: 202003
  2. DUPIXENT [Suspect]
     Active Substance: DUPILUMAB
     Indication: SINUSITIS

REACTIONS (9)
  - Swelling of eyelid [Not Recovered/Not Resolved]
  - Sinusitis [Unknown]
  - Product use in unapproved indication [Unknown]
  - Dry eye [Unknown]
  - Hypersensitivity [Unknown]
  - Lacrimal gland enlargement [Unknown]
  - Eye discharge [Unknown]
  - Eye swelling [Not Recovered/Not Resolved]
  - Eye pruritus [Unknown]

NARRATIVE: CASE EVENT DATE: 2020
